FAERS Safety Report 4986400-X (Version None)
Quarter: 2006Q2

REPORT INFORMATION
  Report Type: 
  Country: None (occurrence: None)
  Receive Date: 20060428
  Receipt Date: 20060331
  Transmission Date: 20061013
  Serious: Yes (Other)
  Sender: FDA-Public Use
  Company Number: DE-JNJFOC-20060400975

PATIENT
  Sex: Female

DRUGS (10)
  1. TOPAMAX [Suspect]
     Route: 048
  2. TOPAMAX [Suspect]
     Route: 048
  3. TOPAMAX [Suspect]
     Indication: MIGRAINE PROPHYLAXIS
     Route: 048
  4. ZALDIAR [Suspect]
     Route: 048
  5. ZALDIAR [Suspect]
     Route: 048
  6. MYDOCALM [Concomitant]
     Route: 048
  7. MYDOCALM [Concomitant]
     Route: 048
  8. DOXEPIN HCL [Concomitant]
  9. DOXEPIN HCL [Concomitant]
  10. ASCOTOP [Concomitant]

REACTIONS (3)
  - CERVICAL ROOT PAIN [None]
  - DEPRESSION [None]
  - SUICIDAL IDEATION [None]
